FAERS Safety Report 7379293-7 (Version None)
Quarter: 2011Q1

REPORT INFORMATION
  Report Type: 
  Country: None (occurrence: None)
  Receive Date: 20110329
  Receipt Date: 20110325
  Transmission Date: 20110831
  Serious: Yes (Death, Hospitalization, Other)
  Sender: FDA-Public Use
  Company Number: US-ASTRAZENECA-2008UW28437

PATIENT
  Age: 10 Year
  Sex: Male
  Weight: 49.9 kg

DRUGS (28)
  1. SEROQUEL [Suspect]
     Indication: BIPOLAR DISORDER
     Route: 048
     Dates: start: 20050101
  2. SEROQUEL [Suspect]
     Dosage: 25 MG ONE-HALF TABLET TO ONE TABLET AT NIGHT
     Route: 048
     Dates: start: 20060524, end: 20070611
  3. ADDERALL 10 [Concomitant]
     Indication: OPPOSITIONAL DEFIANT DISORDER
     Dates: start: 20060101, end: 20070101
  4. CONCERTA/METADATE CD [Concomitant]
     Indication: ATTENTION DEFICIT/HYPERACTIVITY DISORDER
     Dosage: 20-36 MG
     Dates: start: 20030101
  5. CONCERTA/METADATE CD [Concomitant]
     Dosage: 60 MG(30 MG 2 TBS QD)
     Dates: start: 20041130
  6. ABILIFY [Concomitant]
     Route: 048
     Dates: start: 20110105
  7. SEROQUEL [Suspect]
     Route: 048
     Dates: start: 20060524, end: 20070611
  8. SEROQUEL [Suspect]
     Dosage: 25 MG ONE-HALF TABLET TO ONE TABLET AT NIGHT
     Route: 048
     Dates: start: 20060524, end: 20070611
  9. CLONIDINE HCL [Concomitant]
     Indication: OPPOSITIONAL DEFIANT DISORDER
     Dates: start: 20060101, end: 20070101
  10. SEROQUEL [Suspect]
     Route: 048
     Dates: start: 20060524, end: 20070611
  11. SEROQUEL [Suspect]
     Dosage: 25 MG ONE-HALF TABLET TO ONE TABLET AT NIGHT
     Route: 048
     Dates: start: 20060524, end: 20070611
  12. RISPERDAL [Concomitant]
     Indication: ATTENTION DEFICIT/HYPERACTIVITY DISORDER
     Dosage: 0.25MG - 1MG
     Dates: start: 20060929
  13. CONCERTA/METADATE CD [Concomitant]
     Dosage: 54
     Dates: start: 20060501
  14. CLONIDINE HCL [Concomitant]
     Indication: ATTENTION DEFICIT/HYPERACTIVITY DISORDER
     Dates: start: 20060101, end: 20070101
  15. GLUCOPHAGE [Concomitant]
     Route: 048
     Dates: start: 20110105
  16. CONCERTA/METADATE CD [Concomitant]
     Dosage: 60 MG(30 MG 2 TBS QD)
     Dates: start: 20041130
  17. L-LYSINE [Concomitant]
     Dates: start: 20041130
  18. SEROQUEL [Suspect]
     Route: 048
     Dates: start: 20060524, end: 20070611
  19. CONCERTA/METADATE CD [Concomitant]
     Dosage: 54
     Dates: start: 20060501
  20. SEROQUEL [Suspect]
     Indication: ATTENTION DEFICIT/HYPERACTIVITY DISORDER
     Route: 048
     Dates: start: 20050101
  21. SEROQUEL [Suspect]
     Indication: TACHYPHRENIA
     Route: 048
     Dates: start: 20050101
  22. SEROQUEL [Suspect]
     Dosage: 25 MG ONE-HALF TABLET TO ONE TABLET AT NIGHT
     Route: 048
     Dates: start: 20060524, end: 20070611
  23. RISPERDAL [Concomitant]
     Indication: OPPOSITIONAL DEFIANT DISORDER
     Dosage: 0.25MG - 1MG
     Dates: start: 20060929
  24. CONCERTA/METADATE CD [Concomitant]
     Indication: OPPOSITIONAL DEFIANT DISORDER
     Dosage: 20-36 MG
     Dates: start: 20030101
  25. FOCALIN [Concomitant]
     Dates: start: 20070607
  26. SEROQUEL [Suspect]
     Indication: OPPOSITIONAL DEFIANT DISORDER
     Route: 048
     Dates: start: 20050101
  27. SEROQUEL [Suspect]
     Route: 048
     Dates: start: 20060524, end: 20070611
  28. ADDERALL 10 [Concomitant]
     Indication: ATTENTION DEFICIT/HYPERACTIVITY DISORDER
     Dates: start: 20060101, end: 20070101

REACTIONS (9)
  - DEATH [None]
  - TYPE 1 DIABETES MELLITUS [None]
  - KETONURIA [None]
  - BLOOD GLUCOSE ABNORMAL [None]
  - DYSKINESIA [None]
  - HYPERGLYCAEMIA [None]
  - CONVULSION [None]
  - DIABETES MELLITUS [None]
  - GLUCOSE TOLERANCE IMPAIRED [None]
